FAERS Safety Report 9464334 (Version 1)
Quarter: 2013Q3

REPORT INFORMATION
  Report Type: Spontaneous
  Country: GB (occurrence: GB)
  Receive Date: 20130819
  Receipt Date: 20130819
  Transmission Date: 20140515
  Serious: Yes (Other)
  Sender: FDA-Public Use
  Company Number: GB-009507513-1308GBR004728

PATIENT
  Age: 69 Year
  Sex: Male
  Weight: 85 kg

DRUGS (3)
  1. SITAGLIPTIN PHOSPHATE [Suspect]
     Indication: TYPE 2 DIABETES MELLITUS
     Dosage: 100 MG, UNK
     Route: 048
     Dates: start: 20130707, end: 20130721
  2. DULOXETINE HYDROCHLORIDE [Concomitant]
     Indication: NEUROPATHY PERIPHERAL
  3. METFORMIN [Concomitant]
     Indication: TYPE 2 DIABETES MELLITUS

REACTIONS (1)
  - Hallucination, visual [Recovered/Resolved]
